FAERS Safety Report 10010943 (Version 2)
Quarter: 2014Q1

REPORT INFORMATION
  Report Type: Spontaneous
  Country: FR (occurrence: FR)
  Receive Date: 20140314
  Receipt Date: 20140314
  Transmission Date: 20141002
  Serious: Yes (Life-Threatening)
  Sender: FDA-Public Use
  Company Number: FR-ACTELION-A-CH2013-92454

PATIENT
  Age: 70 Year
  Sex: Female

DRUGS (5)
  1. TRACLEER [Suspect]
     Indication: SKIN ULCER
     Dosage: 125 MG, BID
     Route: 048
     Dates: start: 20130911, end: 20131108
  2. TRACLEER [Suspect]
     Dosage: 62.5 MG, BID
     Route: 048
     Dates: start: 2013, end: 2013
  3. INEXIUM [Concomitant]
  4. COZAAR [Concomitant]
  5. LEVOTHYROX [Concomitant]
     Dosage: 50 ?G, UNK

REACTIONS (10)
  - Drug reaction with eosinophilia and systemic symptoms [Recovered/Resolved]
  - Eosinophilia [Recovered/Resolved]
  - Dyspepsia [Recovered/Resolved]
  - Abdominal distension [Recovered/Resolved]
  - Transaminases increased [Recovered/Resolved]
  - Skin ulcer [Unknown]
  - Lymphopenia [Recovered/Resolved]
  - Fatigue [Recovered/Resolved]
  - Pain [Recovered/Resolved]
  - Chills [Recovered/Resolved]
